FAERS Safety Report 7298839-0 (Version None)
Quarter: 2011Q1

REPORT INFORMATION
  Report Type: 
  Country: None (occurrence: None)
  Receive Date: 20110217
  Receipt Date: 20110209
  Transmission Date: 20110831
  Serious: Yes (Hospitalization)
  Sender: FDA-Public Use
  Company Number: FR-ROCHE-759386

PATIENT
  Sex: Female

DRUGS (4)
  1. KYTRIL [Suspect]
     Route: 048
     Dates: start: 20101214, end: 20101218
  2. TEMODAL [Suspect]
     Route: 048
     Dates: end: 20101001
  3. KEPPRA [Concomitant]
     Dates: start: 20101001
  4. MEDROL [Concomitant]
     Dates: start: 20101001

REACTIONS (2)
  - RASH [None]
  - TOXIC SKIN ERUPTION [None]
